FAERS Safety Report 5033822-7 (Version None)
Quarter: 2006Q2

REPORT INFORMATION
  Report Type: 
  Country: None (occurrence: None)
  Receive Date: 20060623
  Receipt Date: 20060508
  Transmission Date: 20061013
  Serious: Yes (Hospitalization, Other)
  Sender: FDA-Public Use
  Company Number: US-AMGEN-KDL178981

PATIENT
  Sex: Female

DRUGS (2)
  1. ENBREL [Suspect]
     Indication: RHEUMATOID ARTHRITIS
     Route: 058
     Dates: start: 20000601, end: 20051101
  2. NAPROXEN [Concomitant]

REACTIONS (6)
  - ARTHRITIS BACTERIAL [None]
  - CHOLELITHIASIS [None]
  - MALAISE [None]
  - PLEURAL EFFUSION [None]
  - PNEUMOCOCCAL SEPSIS [None]
  - TIBIA FRACTURE [None]
